FAERS Safety Report 4599538-6 (Version None)
Quarter: 2005Q1

REPORT INFORMATION
  Report Type: 
  Country: None (occurrence: None)
  Receive Date: 20050127
  Receipt Date: 20041028
  Transmission Date: 20050727
  Serious: No
  Sender: FDA-Public Use
  Company Number: USA041081349

PATIENT
  Age: 50 Year
  Sex: Female
  Weight: 64 kg

DRUGS (2)
  1. STRATTERA [Suspect]
     Indication: ATTENTION DEFICIT/HYPERACTIVITY DISORDER
     Dosage: 40 MG/1 DAY
     Dates: start: 20041013
  2. ATENOLOL [Concomitant]

REACTIONS (7)
  - DECREASED APPETITE [None]
  - DRY MOUTH [None]
  - FEELING ABNORMAL [None]
  - HANGOVER [None]
  - MOOD ALTERED [None]
  - NAUSEA [None]
  - SLEEP DISORDER [None]
